FAERS Safety Report 9413378 (Version 2)
Quarter: 2013Q4

REPORT INFORMATION
  Report Type: Spontaneous
  Country: FR (occurrence: None)
  Receive Date: 20130717
  Receipt Date: 20131011
  Transmission Date: 20140711
  Serious: Yes (Death)
  Sender: FDA-Public Use
  Company Number: SYM-2013-06085

PATIENT
  Age: 77 Year
  Sex: Male

DRUGS (9)
  1. MONO-TILDIEM [Suspect]
     Indication: PRODUCT USED FOR UNKNOWN INDICATION
     Route: 048
     Dates: start: 20130611, end: 20130624
  2. HYDROCORTISONE [Suspect]
     Dosage: 10 MG, 3 IN 1 D), ORAL
     Route: 048
     Dates: start: 20130612, end: 20130624
  3. CONTRAMAL [Suspect]
     Dosage: 50 MG, 3 IN 1 D, ORAL
     Route: 048
     Dates: start: 20130619, end: 20130624
  4. HEPARIN SODIUM [Suspect]
     Route: 042
     Dates: start: 20130614, end: 20130624
  5. INEXIUM [Suspect]
     Dates: start: 20130612, end: 20130624
  6. BUDESONIDE [Suspect]
     Dates: start: 20130609, end: 20130624
  7. COUMADINE [Suspect]
     Route: 048
     Dates: start: 20130615, end: 20130624
  8. MIMPARA [Suspect]
     Route: 048
     Dates: start: 20130615, end: 20130624
  9. RENAGEL [Suspect]
     Route: 048
     Dates: start: 20130613, end: 20130624

REACTIONS (4)
  - Hepatitis fulminant [None]
  - Acute respiratory distress syndrome [None]
  - Vomiting [None]
  - Multi-organ failure [None]
